FAERS Safety Report 13121806 (Version 2)
Quarter: 2017Q1

REPORT INFORMATION
  Report Type: Spontaneous
  Country: US (occurrence: US)
  Receive Date: 20170117
  Receipt Date: 20170217
  Transmission Date: 20170428
  Serious: Yes (Other)
  Sender: FDA-Public Use
  Company Number: US-JNJFOC-20170112333

PATIENT
  Age: 8 Year
  Sex: Male
  Weight: 72.5 kg

DRUGS (1)
  1. RISPERDAL [Suspect]
     Active Substance: RISPERIDONE
     Indication: ATTENTION DEFICIT/HYPERACTIVITY DISORDER
     Route: 048
     Dates: start: 199801, end: 200001

REACTIONS (6)
  - Gynaecomastia [Unknown]
  - Product use issue [Unknown]
  - Emotional disorder [Unknown]
  - Off label use [Unknown]
  - Obesity [Unknown]
  - Akathisia [Unknown]

NARRATIVE: CASE EVENT DATE: 199801
